FAERS Safety Report 23192532 (Version 2)
Quarter: 2023Q4

REPORT INFORMATION
  Report Type: Spontaneous
  Country: JP (occurrence: JP)
  Receive Date: 20231116
  Receipt Date: 20231116
  Transmission Date: 20240110
  Serious: No
  Sender: FDA-Public Use
  Company Number: JP-SCALL-2023-JP-116050

PATIENT
  Age: 76 Year
  Sex: Male

DRUGS (13)
  1. DUTASTERIDE [Suspect]
     Active Substance: DUTASTERIDE
     Indication: Benign prostatic hyperplasia
     Dosage: 0.5 MG, 1D
     Dates: start: 20230718
  2. Urief OD [Concomitant]
     Route: 048
  3. AMLODIPINE BESYLATE\AZILSARTAN [Concomitant]
     Active Substance: AMLODIPINE BESYLATE\AZILSARTAN
  4. EDOXABAN TOSYLATE [Concomitant]
     Active Substance: EDOXABAN TOSYLATE
     Route: 048
  5. VIBEGRON [Concomitant]
     Active Substance: VIBEGRON
     Dosage: 50 MG OD
  6. HERBALS [Concomitant]
     Active Substance: HERBALS
  7. LOXOPROFEN SODIUM DIHYDRATE [Concomitant]
     Active Substance: LOXOPROFEN SODIUM DIHYDRATE
  8. CARDENALIN [Concomitant]
     Active Substance: DOXAZOSIN MESYLATE
  9. ROSUVASTATIN CALCIUM [Concomitant]
     Active Substance: ROSUVASTATIN CALCIUM
     Route: 048
  10. PIRENOXINE [Concomitant]
     Active Substance: PIRENOXINE
     Route: 047
  11. NEXIUM [Concomitant]
     Active Substance: ESOMEPRAZOLE MAGNESIUM
  12. ASPIRIN [Concomitant]
     Active Substance: ASPIRIN
  13. Sancoba Ophthalmic Solution [Concomitant]
     Route: 047

REACTIONS (1)
  - Glycosylated haemoglobin decreased [Unknown]

NARRATIVE: CASE EVENT DATE: 20230801
